FAERS Safety Report 19449804 (Version 8)
Quarter: 2025Q3

REPORT INFORMATION
  Report Type: Report from Study
  Country: US (occurrence: US)
  Receive Date: 20210622
  Receipt Date: 20250710
  Transmission Date: 20251020
  Serious: Yes (Other)
  Sender: TAKEDA
  Company Number: US-TAKEDA-2021TUS016627

PATIENT
  Sex: Female

DRUGS (2)
  1. HUMAN IMMUNOGLOBULIN G [Suspect]
     Active Substance: HUMAN IMMUNOGLOBULIN G
     Indication: IgG deficiency
  2. HUMAN IMMUNOGLOBULIN G [Suspect]
     Active Substance: HUMAN IMMUNOGLOBULIN G
     Indication: Primary immunodeficiency syndrome

REACTIONS (15)
  - Pertussis [Unknown]
  - Loss of consciousness [Unknown]
  - COVID-19 [Unknown]
  - Spinal column injury [Unknown]
  - Pharyngitis streptococcal [Unknown]
  - Ear infection [Unknown]
  - Illness [Unknown]
  - Blood immunoglobulin E increased [Unknown]
  - Allergy to arthropod bite [Unknown]
  - Hepatic enzyme increased [Unknown]
  - Mumps [Unknown]
  - Accidental exposure to product [Unknown]
  - Product storage error [Unknown]
  - Asthma [Unknown]
  - Pain [Unknown]
